APPROVED DRUG PRODUCT: ENTECAVIR
Active Ingredient: ENTECAVIR
Strength: 0.5MG
Dosage Form/Route: TABLET;ORAL
Application: A212201 | Product #001
Applicant: YAOPHARMA CO LTD
Approved: Nov 4, 2019 | RLD: No | RS: No | Type: DISCN